FAERS Safety Report 25279699 (Version 1)
Quarter: 2025Q2

REPORT INFORMATION
  Report Type: Spontaneous
  Country: TH (occurrence: TH)
  Receive Date: 20250507
  Receipt Date: 20250507
  Transmission Date: 20250717
  Serious: Yes (Death)
  Sender: PFIZER
  Company Number: TH-PFIZER INC-202500095832

PATIENT

DRUGS (1)
  1. LORLATINIB [Suspect]
     Active Substance: LORLATINIB
     Indication: Lung neoplasm malignant
     Dosage: 100 MG OD
     Dates: start: 20250428

REACTIONS (1)
  - Necrotising fasciitis [Fatal]
